FAERS Safety Report 8565249-5 (Version None)
Quarter: 2012Q3

REPORT INFORMATION
  Report Type: 
  Country: None (occurrence: None)
  Receive Date: 20120803
  Receipt Date: 20120727
  Transmission Date: 20120928
  Serious: Yes (Congenital Anomaly)
  Sender: FDA-Public Use
  Company Number: FR-GLAXOSMITHKLINE-B0818625A

PATIENT

DRUGS (3)
  1. KEPPRA [Suspect]
     Indication: PRODUCT USED FOR UNKNOWN INDICATION
     Dosage: 250MG PER DAY
     Route: 064
     Dates: start: 20120201, end: 20120406
  2. DEPAKENE [Suspect]
     Indication: PRODUCT USED FOR UNKNOWN INDICATION
     Dosage: 500MG TWICE PER DAY
     Route: 064
     Dates: start: 20110711, end: 20120201
  3. LAMICTAL [Suspect]
     Indication: PRODUCT USED FOR UNKNOWN INDICATION
     Dosage: 25MG TWICE PER DAY
     Route: 064
     Dates: start: 20120201, end: 20120406

REACTIONS (5)
  - MULTIPLE CONGENITAL ABNORMALITIES [None]
  - FOETAL EXPOSURE DURING PREGNANCY [None]
  - CONGENITAL RENAL CYST [None]
  - RETROGNATHIA [None]
  - CLUBBING [None]
